FAERS Safety Report 6427781-X (Version None)
Quarter: 2009Q4

REPORT INFORMATION
  Report Type: 
  Country: None (occurrence: None)
  Receive Date: 20091030
  Receipt Date: 20091016
  Transmission Date: 20100525
  Serious: Yes (Hospitalization)
  Sender: FDA-Public Use
  Company Number: 2009AC000258

PATIENT
  Age: 72 Year
  Sex: Male
  Weight: 116 kg

DRUGS (18)
  1. DIGOXIN [Suspect]
     Dosage: .125 MG;QD;PO
     Route: 048
     Dates: start: 20051201, end: 20080101
  2. METFORMIN HCL [Concomitant]
  3. GLIPIZIDE [Concomitant]
  4. COREG [Concomitant]
  5. LASIX [Concomitant]
  6. METOLAZONE [Concomitant]
  7. BENAZEPRIL HYDROCHLORIDE [Concomitant]
  8. COUMADIN [Concomitant]
  9. LIPITOR [Concomitant]
  10. IMDUR [Concomitant]
  11. ALLOPURINOL [Concomitant]
  12. POTASSIUM CHLORIDE [Concomitant]
  13. ALDACTONE [Concomitant]
  14. CLIPIZIDE [Concomitant]
  15. VIAGRA [Concomitant]
  16. KLOR-CON [Concomitant]
  17. TOLVAPTAN [Concomitant]
  18. METOLAZONE [Concomitant]

REACTIONS (11)
  - CARDIAC FAILURE CONGESTIVE [None]
  - COUGH [None]
  - DYSPNOEA [None]
  - ECONOMIC PROBLEM [None]
  - HYPOTENSION [None]
  - MULTIPLE INJURIES [None]
  - OEDEMA PERIPHERAL [None]
  - ORTHOPNOEA [None]
  - SURGERY [None]
  - TREATMENT NONCOMPLIANCE [None]
  - WAIST CIRCUMFERENCE INCREASED [None]
